FAERS Safety Report 7052658-9 (Version None)
Quarter: 2010Q4

REPORT INFORMATION
  Report Type: 
  Country: None (occurrence: None)
  Receive Date: 20101019
  Receipt Date: 20100927
  Transmission Date: 20110411
  Serious: Yes (Other)
  Sender: FDA-Public Use
  Company Number: US-AMGEN INC.-KDL442537

PATIENT

DRUGS (13)
  1. PROCRIT [Suspect]
     Indication: ANAEMIA
     Dosage: 40000 IU, QWK
     Route: 058
     Dates: start: 20100501
  2. PEGINTERFERON ALFA-2A [Concomitant]
     Dosage: 180 A?G, QD
     Route: 058
     Dates: start: 20100128
  3. PEGINTERFERON ALFA-2A [Concomitant]
     Dosage: 180 MG, QWK
     Route: 058
     Dates: start: 20100128
  4. RIBAVIRIN [Concomitant]
     Dosage: 200 MG, QD
     Route: 048
     Dates: start: 20100101
  5. ESOMEPRAZOLE MAGNESIUM [Concomitant]
     Dosage: 40 MG, QD
     Route: 048
     Dates: start: 20060101
  6. POTASSIUM [Concomitant]
     Dosage: 20 MEQ, QD
     Route: 048
     Dates: start: 20060101
  7. FUROSEMIDE [Concomitant]
     Dosage: 40 MG, QD
     Route: 048
     Dates: start: 20060101
  8. LISINOPRIL [Concomitant]
     Dosage: 5 MG, QD
     Route: 048
     Dates: start: 20060101
  9. THEOPHYLLINE [Concomitant]
     Dosage: 200 MG, QD
     Route: 048
     Dates: start: 20060101
  10. PROCATEROL HCL [Concomitant]
     Dosage: UNK UNK, QID
     Route: 045
     Dates: start: 20060101
  11. FLUTICASONE/SALMETEROL [Concomitant]
     Dosage: UNK UNK, BID
     Route: 045
     Dates: start: 20060101
  12. MULTI-VITAMINS [Concomitant]
     Dosage: UNK UNK, QD
     Route: 048
     Dates: start: 19700101
  13. POTASSIUM CHLORIDE [Concomitant]
     Dosage: 20 A?G, QD
     Route: 048
     Dates: start: 20060101

REACTIONS (5)
  - ANORECTAL DISCOMFORT [None]
  - FAECES DISCOLOURED [None]
  - GASTROINTESTINAL HAEMORRHAGE [None]
  - GASTROINTESTINAL PAIN [None]
  - PAINFUL DEFAECATION [None]
